FAERS Safety Report 9164709 (Version 1)
Quarter: 2013Q1

REPORT INFORMATION
  Report Type: Spontaneous
  Country: US (occurrence: None)
  Receive Date: 20130301
  Receipt Date: 20130301
  Transmission Date: 20140127
  Serious: Yes (Hospitalization)
  Sender: FDA-Public Use
  Company Number: 2013SUN00195

PATIENT
  Age: 13 Year
  Sex: Male

DRUGS (2)
  1. OLANZAPINE 15 MG TABLETS (OLANZAPINE) TABLET, 15MG [Suspect]
     Indication: BIPOLAR DISORDER
  2. LAMOTRIGINE (LAMOTRIGINE) [Concomitant]

REACTIONS (2)
  - Disturbance in attention [None]
  - Electroencephalogram abnormal [None]
